FAERS Safety Report 4877136-4 (Version None)
Quarter: 2005Q4

REPORT INFORMATION
  Report Type: 
  Country: None (occurrence: None)
  Receive Date: 20051206
  Receipt Date: 20050824
  Transmission Date: 20060501
  Serious: No
  Sender: FDA-Public Use
  Company Number: USA0508106378

PATIENT
  Age: 50 Year
  Sex: Female

DRUGS (9)
  1. CYMBALTA [Suspect]
     Indication: DEPRESSION
     Dosage: 60 MG/ DAY
     Dates: start: 20050501
  2. PROZAC [Concomitant]
  3. AMBIEN [Concomitant]
  4. ESZOPICLONE [Concomitant]
  5. KLONOPIN [Concomitant]
  6. ALPRAZOLAM [Concomitant]
  7. ADVAIR DISKUS 250/50 [Concomitant]
  8. SINGULAIR [Concomitant]
  9. ALLEGRA [Concomitant]

REACTIONS (6)
  - FEELING ABNORMAL [None]
  - HEADACHE [None]
  - INCREASED APPETITE [None]
  - INCREASED TENDENCY TO BRUISE [None]
  - VISION BLURRED [None]
  - WEIGHT INCREASED [None]
